FAERS Safety Report 7259549-9 (Version None)
Quarter: 2011Q1

REPORT INFORMATION
  Report Type: 
  Country: None (occurrence: None)
  Receive Date: 20110130
  Receipt Date: 20100910
  Transmission Date: 20110831
  Serious: No
  Sender: FDA-Public Use
  Company Number: US-ABBOTT-10P-163-0670950-00

PATIENT
  Sex: Female

DRUGS (2)
  1. HUMIRA [Suspect]
     Indication: CROHN'S DISEASE
     Route: 058
     Dates: start: 20080101, end: 20080701
  2. HUMIRA [Suspect]
     Route: 058
     Dates: start: 20080701

REACTIONS (4)
  - PSORIASIS [None]
  - STAPHYLOCOCCAL INFECTION [None]
  - SKIN INFECTION [None]
  - DRUG INEFFECTIVE [None]
